FAERS Safety Report 9746374 (Version 2)
Quarter: 2014Q3

REPORT INFORMATION
  Report Type: Report from Study
  Country: US (occurrence: US)
  Receive Date: 20131211
  Receipt Date: 20140702
  Transmission Date: 20150326
  Serious: Yes (Hospitalization)
  Sender: FDA-Public Use
  Company Number: US-GLAXOSMITHKLINE-A1050304A

PATIENT
  Age: 59 Year
  Sex: Female
  Weight: 63.6 kg

DRUGS (5)
  1. MS CONTIN [Concomitant]
     Active Substance: MORPHINE SULFATE
     Indication: NAUSEA
  2. TRAMETINIB [Suspect]
     Active Substance: TRAMETINIB
     Indication: SARCOMA
     Dosage: 2MG PER DAY
     Route: 048
     Dates: start: 20131011, end: 20131105
  3. REGLAN [Suspect]
     Active Substance: METOCLOPRAMIDE HYDROCHLORIDE
  4. PAZOPANIB [Suspect]
     Active Substance: PAZOPANIB
     Indication: SARCOMA
     Dosage: 800MG PER DAY
     Route: 048
     Dates: start: 20131011, end: 20131105
  5. SCOPOLAMINE [Suspect]
     Active Substance: SCOPOLAMINE
     Indication: NAUSEA
     Route: 062

REACTIONS (4)
  - Vomiting [Recovering/Resolving]
  - Mental status changes [Recovering/Resolving]
  - Nausea [Recovering/Resolving]
  - Tremor [Recovering/Resolving]

NARRATIVE: CASE EVENT DATE: 20131105
